FAERS Safety Report 23834044 (Version 1)
Quarter: 2024Q2

REPORT INFORMATION
  Report Type: Spontaneous
  Country: EG (occurrence: EG)
  Receive Date: 20240509
  Receipt Date: 20240509
  Transmission Date: 20240715
  Serious: Yes (Death)
  Sender: FDA-Public Use
  Company Number: EG-IHL-000546

PATIENT
  Age: 66 Year
  Sex: Female

DRUGS (6)
  1. VENLAFAXINE HYDROCHLORIDE [Suspect]
     Active Substance: VENLAFAXINE HYDROCHLORIDE
     Indication: Product used for unknown indication
     Dosage: METABOLIC RATIO (MR) OF VENLAFAXINE (VEN) IS 130 MICROGRAMS PER LITER
     Route: 065
  2. ACETAMINOPHEN [Suspect]
     Active Substance: ACETAMINOPHEN
     Indication: Product used for unknown indication
     Dosage: METABOLIC RATIO (MR) OF PARACETAMOL IS 1480 MICROGRAMS PER LITER
     Route: 065
  3. OXAZEPAM [Suspect]
     Active Substance: OXAZEPAM
     Indication: Product used for unknown indication
     Dosage: METABOLIC RATIO (MR) FOR OXAZEPAM 86 MICROGRAMS PER LITER
     Route: 065
  4. TRAMADOL [Suspect]
     Active Substance: TRAMADOL\TRAMADOL HYDROCHLORIDE
     Indication: Product used for unknown indication
     Dosage: METABOLIC RATIO (MR) FOR TRAMADOL 231 MICROGRAMS PER LITER
     Route: 065
  5. DESVENLAFAXINE [Suspect]
     Active Substance: DESVENLAFAXINE
     Indication: Product used for unknown indication
     Dosage: METABOLIC RATIO (MR) FOR O-DESMETHYLVENLAFAXINE (ODV) 256 MICROGRAMS PER LITER
     Route: 065
  6. ZOLPIDEM [Suspect]
     Active Substance: ZOLPIDEM TARTRATE
     Indication: Product used for unknown indication
     Dosage: METABOLIC RATIO (MR) OF ZOLPIDEM IS 932 MICROGRAMS PER LITER
     Route: 065

REACTIONS (4)
  - Toxicity to various agents [Fatal]
  - Death [Fatal]
  - Drug-genetic interaction [Fatal]
  - Drug interaction [Fatal]
